FAERS Safety Report 9691326 (Version 2)
Quarter: 2013Q4

REPORT INFORMATION
  Report Type: Report from Study
  Country: CA (occurrence: CA)
  Receive Date: 20131115
  Receipt Date: 20131122
  Transmission Date: 20140711
  Serious: Yes (Life-Threatening, Hospitalization, Other)
  Sender: FDA-Public Use
  Company Number: PHHY2013CA129669

PATIENT
  Age: 34 Year
  Sex: Male

DRUGS (2)
  1. CLOZARIL [Suspect]
     Indication: SCHIZOPHRENIA
     Dosage: 300 MG, HS DIE
     Route: 048
     Dates: start: 20131022, end: 20131107
  2. ANTIDEPRESSANTS [Concomitant]
     Dosage: UNK

REACTIONS (15)
  - Myocarditis [Recovered/Resolved]
  - Ventricular hypokinesia [Unknown]
  - Exercise tolerance decreased [Unknown]
  - Fatigue [Unknown]
  - Pyrexia [Unknown]
  - Tachycardia [Unknown]
  - Abdominal discomfort [Unknown]
  - Hypotension [Unknown]
  - Dyspnoea [Unknown]
  - Pancreatitis [Recovered/Resolved]
  - Abdominal tenderness [Unknown]
  - Nausea [Unknown]
  - Vomiting [Unknown]
  - Diarrhoea [Unknown]
  - Viral infection [Unknown]
